FAERS Safety Report 9697322 (Version 3)
Quarter: 2013Q4

REPORT INFORMATION
  Report Type: Spontaneous
  Country: US (occurrence: US)
  Receive Date: 20131120
  Receipt Date: 20131126
  Transmission Date: 20140711
  Serious: No
  Sender: FDA-Public Use
  Company Number: US-009507513-1310USA010026

PATIENT
  Age: 75 Year
  Sex: Female

DRUGS (3)
  1. DULERA [Suspect]
     Indication: EMPHYSEMA
     Dosage: 1 INHALATION, TWICE DAILY
     Route: 055
     Dates: start: 201307
  2. HYZAAR [Concomitant]
  3. LIPITOR [Concomitant]

REACTIONS (3)
  - Dyspnoea [Not Recovered/Not Resolved]
  - Drug dose omission [Unknown]
  - Product quality issue [Unknown]
